FAERS Safety Report 6804520-1 (Version None)
Quarter: 2010Q2

REPORT INFORMATION
  Report Type: 
  Country: None (occurrence: None)
  Receive Date: 20100628
  Receipt Date: 20070402
  Transmission Date: 20101027
  Serious: Yes (Other)
  Sender: FDA-Public Use
  Company Number: US-PFIZER INC-2007020906

PATIENT
  Sex: Male
  Weight: 74.8 kg

DRUGS (7)
  1. SUTENT [Suspect]
     Indication: RENAL CELL CARCINOMA
     Dates: start: 20070226
  2. SUTENT [Suspect]
  3. ZOCOR [Concomitant]
     Dosage: 40MG
  4. TOPROL-XL [Concomitant]
     Dosage: 100MG
  5. NORVASC [Concomitant]
  6. ACETYLSALICYLIC ACID [Concomitant]
     Dosage: 81MG
  7. METFORMIN HCL [Concomitant]

REACTIONS (6)
  - EYE PAIN [None]
  - EYELID OEDEMA [None]
  - GASTROOESOPHAGEAL REFLUX DISEASE [None]
  - LACRIMATION INCREASED [None]
  - PRURITUS [None]
  - SKIN DISCOLOURATION [None]
